FAERS Safety Report 21287008 (Version 1)
Quarter: 2022Q3

REPORT INFORMATION
  Report Type: Spontaneous
  Country: US (occurrence: US)
  Receive Date: 20220902
  Receipt Date: 20220902
  Transmission Date: 20221027
  Serious: No
  Sender: FDA-Public Use
  Company Number: US-GE HEALTHCARE-2022CSU004433

PATIENT
  Sex: Male

DRUGS (5)
  1. DATSCAN [Suspect]
     Active Substance: IODINE\IOFLUPANE I-123
     Indication: Diagnostic procedure
     Dosage: 192.4 MBQ, SINGLE
     Route: 065
     Dates: start: 20220623, end: 20220623
  2. DATSCAN [Suspect]
     Active Substance: IODINE\IOFLUPANE I-123
     Indication: Delirium
  3. DATSCAN [Suspect]
     Active Substance: IODINE\IOFLUPANE I-123
     Indication: Fall
  4. DATSCAN [Suspect]
     Active Substance: IODINE\IOFLUPANE I-123
     Indication: Confusional state
  5. DATSCAN [Suspect]
     Active Substance: IODINE\IOFLUPANE I-123
     Indication: Hallucination

REACTIONS (2)
  - Radioisotope scan abnormal [Recovered/Resolved]
  - No adverse event [Recovered/Resolved]

NARRATIVE: CASE EVENT DATE: 20220623
